FAERS Safety Report 8487381-7 (Version None)
Quarter: 2012Q3

REPORT INFORMATION
  Report Type: 
  Country: None (occurrence: None)
  Receive Date: 20120705
  Receipt Date: 20120622
  Transmission Date: 20120928
  Serious: Yes (Hospitalization, Other)
  Sender: FDA-Public Use
  Company Number: US-ELI_LILLY_AND_COMPANY-US201206009097

PATIENT
  Sex: Male

DRUGS (7)
  1. DOXYCLINE [Concomitant]
     Dosage: 100 MG, BID
  2. RISPERDAL [Concomitant]
     Dosage: 3 MG, QD
  3. FLOMAX [Concomitant]
     Dosage: 0.4 MG, QD
  4. TRAZODONE HCL [Concomitant]
     Dosage: 200 MG, QD
  5. STRATTERA [Suspect]
     Dosage: 80 MG, UNKNOWN
     Dates: start: 20120217, end: 20120501
  6. KEFLEX [Concomitant]
     Dosage: 500 MG, BID
  7. STRATTERA [Suspect]
     Indication: ATTENTION DEFICIT/HYPERACTIVITY DISORDER
     Dosage: 80 MG, UNKNOWN
     Dates: start: 20111101

REACTIONS (5)
  - DEPRESSION [None]
  - PSYCHIATRIC SYMPTOM [None]
  - ALANINE AMINOTRANSFERASE INCREASED [None]
  - ATTENTION DEFICIT/HYPERACTIVITY DISORDER [None]
  - ASPARTATE AMINOTRANSFERASE INCREASED [None]
